FAERS Safety Report 5200445-6 (Version None)
Quarter: 2006Q4

REPORT INFORMATION
  Report Type: 
  Country: None (occurrence: None)
  Receive Date: 20061016
  Receipt Date: 20060727
  Transmission Date: 20070319
  Serious: No
  Sender: FDA-Public Use
  Company Number: 2006SP002816

PATIENT
  Age: 64 Year
  Sex: Female
  Weight: 99.7913 kg

DRUGS (6)
  1. LUNESTA [Suspect]
     Indication: INSOMNIA
     Dosage: 3 MG;HS;ORAL
     Route: 048
     Dates: start: 20060501
  2. LUNESTA [Suspect]
     Indication: PAIN
     Dosage: 3 MG;HS;ORAL
     Route: 048
     Dates: start: 20060501
  3. TRAMADOL HCL [Concomitant]
  4. LASIX [Concomitant]
  5. SERUMLIPIDREDUCING AGENTS [Concomitant]
  6. TRAZODONE HCL [Concomitant]

REACTIONS (1)
  - INSOMNIA [None]
